FAERS Safety Report 9172684 (Version 1)
Quarter: 2012Q4

REPORT INFORMATION
  Report Type: Report from Study
  Country: CA (occurrence: CA)
  Receive Date: 20120911
  Receipt Date: 20120911
  Transmission Date: 20130627
  Serious: Yes (Death)
  Sender: FDA-Public Use
  Company Number: CA-ROCHE-1122344

PATIENT
  Sex: Female
  Weight: 80.81 kg

DRUGS (7)
  1. XELODA [Suspect]
     Indication: COLORECTAL CANCER METASTATIC
     Route: 048
     Dates: start: 201205
  2. FRAGMIN [Concomitant]
  3. HYDROMORPHONE [Concomitant]
  4. AMLODIPINE BESYLATE [Concomitant]
  5. SENOKOT [Concomitant]
  6. RABEPRAZOLE SODIUM [Concomitant]
  7. RESTORALAX [Concomitant]

REACTIONS (1)
  - Death [Fatal]
